FAERS Safety Report 8592120-5 (Version None)
Quarter: 2012Q3

REPORT INFORMATION
  Report Type: 
  Country: None (occurrence: None)
  Receive Date: 20120814
  Receipt Date: 20120808
  Transmission Date: 20120928
  Serious: Yes (Other)
  Sender: FDA-Public Use
  Company Number: JP-VERTEX PHARMACEUTICALS INC.-AE-2012-008318

PATIENT
  Age: 65 Year
  Sex: Male

DRUGS (26)
  1. GLUCOBAY [Concomitant]
     Route: 048
  2. MAGNESIUM OXIDE [Concomitant]
     Route: 048
  3. MAGNESIUM HYDROXIDE TAB [Concomitant]
     Route: 048
  4. LANSOPRAZOLE [Concomitant]
     Route: 048
  5. MAGNESIUM OXIDE [Concomitant]
     Route: 048
  6. ASPIRIN [Concomitant]
     Route: 048
  7. LEVOFLOXACIN [Concomitant]
     Route: 048
     Dates: start: 20120501, end: 20120503
  8. PEGINTERFERON ALFA-2B [Concomitant]
     Indication: HEPATITIS C
     Route: 058
     Dates: start: 20120214
  9. GLUFAST [Concomitant]
     Route: 048
  10. MAGNESIUM HYDROXIDE TAB [Concomitant]
     Route: 048
  11. JANUVIA [Concomitant]
     Route: 048
  12. TELAVIC [Suspect]
     Route: 048
     Dates: start: 20120417, end: 20120505
  13. POVIDONE IODINE [Concomitant]
     Route: 049
     Dates: start: 20120501, end: 20120507
  14. REBETOL [Concomitant]
     Route: 048
     Dates: start: 20120703
  15. LAC-B [Concomitant]
     Route: 048
  16. DILTIAZEM HCL [Concomitant]
     Route: 048
  17. FAMOTIDINE [Concomitant]
     Route: 048
     Dates: start: 20120417, end: 20120508
  18. TELAVIC [Suspect]
     Indication: HEPATITIS C
     Route: 048
     Dates: start: 20120214, end: 20120416
  19. REBETOL [Concomitant]
     Indication: HEPATITIS C
     Route: 048
     Dates: start: 20120214, end: 20120410
  20. REBETOL [Concomitant]
     Route: 048
     Dates: start: 20120425, end: 20120702
  21. PANCREAZE [Concomitant]
     Route: 048
  22. REBETOL [Concomitant]
     Route: 048
     Dates: start: 20120411, end: 20120424
  23. LAC-B [Concomitant]
     Route: 048
  24. PANCREAZE [Concomitant]
     Route: 048
  25. LANTUS INJ SOLOSTAR [Concomitant]
     Route: 058
  26. LANSOPRAZOLE [Concomitant]
     Route: 048

REACTIONS (3)
  - PLATELET COUNT DECREASED [None]
  - RASH [None]
  - HAEMOGLOBIN DECREASED [None]
